FAERS Safety Report 12849733 (Version 4)
Quarter: 2018Q2

REPORT INFORMATION
  Report Type: Spontaneous
  Country: US (occurrence: US)
  Receive Date: 20161014
  Receipt Date: 20180507
  Transmission Date: 20180711
  Serious: No
  Sender: FDA-Public Use
  Company Number: US-ROCHE-1818034

PATIENT
  Sex: Male

DRUGS (8)
  1. GLIPIZIDE/METFORMIN HYDROCHLORIDE [Concomitant]
     Active Substance: GLIPIZIDE\METFORMIN HYDROCHLORIDE
  2. LISINOPRIL. [Concomitant]
     Active Substance: LISINOPRIL
  3. OMEPRAZOLE MAGNESIUM. [Concomitant]
     Active Substance: OMEPRAZOLE MAGNESIUM
  4. ATENOLOL. [Concomitant]
     Active Substance: ATENOLOL
  5. METFORMIN ER [Concomitant]
     Active Substance: METFORMIN HYDROCHLORIDE
  6. ASPIRIN. [Concomitant]
     Active Substance: ASPIRIN
  7. ESBRIET [Suspect]
     Active Substance: PIRFENIDONE
     Indication: IDIOPATHIC PULMONARY FIBROSIS
     Dosage: MAINTAINED DOSE
     Route: 048
     Dates: start: 20160401
  8. AIRBORNE (UNK INGREDIENTS) [Concomitant]

REACTIONS (4)
  - Poor quality sleep [Unknown]
  - Fatigue [Unknown]
  - Pneumonia [Unknown]
  - Dyspnoea [Unknown]
